FAERS Safety Report 7629707-X (Version None)
Quarter: 2011Q3

REPORT INFORMATION
  Report Type: 
  Country: None (occurrence: None)
  Receive Date: 20110722
  Receipt Date: 20110714
  Transmission Date: 20111222
  Serious: Yes (Other)
  Sender: FDA-Public Use
  Company Number: CA-ROCHE-790466

PATIENT
  Sex: Male

DRUGS (5)
  1. PEGASYS [Suspect]
     Route: 058
     Dates: start: 20110301
  2. EPREX [Concomitant]
     Route: 058
     Dates: start: 20110601
  3. PEGASYS [Suspect]
     Indication: HEPATITIS C
     Route: 058
  4. COPEGUS [Suspect]
     Route: 048
     Dates: start: 20110301
  5. COPEGUS [Suspect]
     Indication: HEPATITIS C
     Route: 048

REACTIONS (2)
  - HEPATITIS C [None]
  - LICHEN PLANUS [None]
